FAERS Safety Report 17730739 (Version 1)
Quarter: 2020Q2

REPORT INFORMATION
  Report Type: Spontaneous
  Country: DE (occurrence: DE)
  Receive Date: 20200430
  Receipt Date: 20200430
  Transmission Date: 20200714
  Serious: Yes (Hospitalization)
  Sender: FDA-Public Use
  Company Number: DE-MYLANLABS-2020M1042491

PATIENT
  Age: 96 Year
  Sex: Female

DRUGS (4)
  1. METOPROLOL. [Concomitant]
     Active Substance: METOPROLOL
     Dosage: 47.5 MG, 1-0-1-0
  2. APIXABAN [Concomitant]
     Active Substance: APIXABAN
     Dosage: 2.5 MG, 1-0-1-0
  3. TORASEMID [Concomitant]
     Active Substance: TORSEMIDE
     Dosage: 5 MG, 1-0-0-0
  4. AMIODARONE [Suspect]
     Active Substance: AMIODARONE
     Indication: PRODUCT USED FOR UNKNOWN INDICATION
     Dosage: NK MG, ABGESETZT 122019
     Route: 065

REACTIONS (3)
  - Dyspnoea [Unknown]
  - Palpitations [Unknown]
  - General physical health deterioration [Unknown]
